FAERS Safety Report 4721968-X (Version None)
Quarter: 2005Q3

REPORT INFORMATION
  Report Type: 
  Country: None (occurrence: None)
  Receive Date: 20050720
  Receipt Date: 20050707
  Transmission Date: 20060218
  Serious: Yes (Other)
  Sender: FDA-Public Use
  Company Number: GBWYE219222NOV04

PATIENT
  Sex: Male

DRUGS (3)
  1. GEMTUZUMAB OZOGAMICIN (GEMTUZUMAB OZOGAMICIN, INJECTION) [Suspect]
  2. DAUNORUBICIN (DAUNORUBICIN) [Concomitant]
  3. CYTARABINE [Concomitant]

REACTIONS (5)
  - DIFFICULTY IN WALKING [None]
  - NEUROPATHY PERIPHERAL [None]
  - PERIPHERAL MOTOR NEUROPATHY [None]
  - PERIPHERAL SENSORY NEUROPATHY [None]
  - WHEELCHAIR USER [None]
